FAERS Safety Report 6250270-2 (Version None)
Quarter: 2009Q2

REPORT INFORMATION
  Report Type: 
  Country: None (occurrence: None)
  Receive Date: 20090626
  Receipt Date: 20090626
  Transmission Date: 20091009
  Serious: No
  Sender: FDA-Public Use
  Company Number: None

PATIENT
  Age: 40 Year
  Sex: Male
  Weight: 85 kg

DRUGS (7)
  1. DILAUDID [Suspect]
     Indication: POSTOPERATIVE ANALGESIA
     Dosage: 2 MG Q2H PRN IV
     Route: 042
     Dates: start: 20090515, end: 20090516
  2. ANCEF [Suspect]
     Indication: PROPHYLAXIS
     Dosage: 1 GM Q8H IV
     Route: 042
     Dates: start: 20090515, end: 20090516
  3. SOMA [Concomitant]
  4. OXYCODONE [Concomitant]
  5. PERCOCET [Concomitant]
  6. DOCUSATE [Concomitant]
  7. DECADRON [Concomitant]

REACTIONS (3)
  - RASH [None]
  - SWOLLEN TONGUE [None]
  - URTICARIA [None]
